FAERS Safety Report 8541663-9 (Version None)
Quarter: 2012Q3

REPORT INFORMATION
  Report Type: 
  Country: None (occurrence: None)
  Receive Date: 20120726
  Receipt Date: 20120719
  Transmission Date: 20120928
  Serious: Yes (Hospitalization)
  Sender: FDA-Public Use
  Company Number: JP-GLAXOSMITHKLINE-B0814546A

PATIENT
  Sex: Female

DRUGS (4)
  1. PAXIL [Suspect]
     Indication: DEPRESSION
     Dosage: 30MG PER DAY
     Route: 048
  2. ALLOPURINOL [Concomitant]
     Dosage: 100MG PER DAY
     Route: 048
  3. CALCIUM CARBONATE [Concomitant]
     Dosage: 1500MG PER DAY
     Route: 048
  4. SORBITOL 50PC INJ [Concomitant]
     Dosage: 3IUAX PER DAY
     Route: 048

REACTIONS (3)
  - CONVULSION [None]
  - SEROTONIN SYNDROME [None]
  - RESTLESSNESS [None]
